FAERS Safety Report 13858530 (Version 1)
Quarter: 2017Q3

REPORT INFORMATION
  Report Type: Spontaneous
  Country: US (occurrence: US)
  Receive Date: 20170810
  Receipt Date: 20170810
  Transmission Date: 20171127
  Serious: Yes (Death)
  Sender: FDA-Public Use
  Company Number: None

PATIENT
  Age: 34 Year
  Sex: Male
  Weight: 85.5 kg

DRUGS (9)
  1. WELLBUTRIN XL [Concomitant]
     Active Substance: BUPROPION HYDROCHLORIDE
  2. HCTZ [Concomitant]
     Active Substance: HYDROCHLOROTHIAZIDE
  3. MEDICATIONS FOR IBS [Concomitant]
  4. VISTROL [Concomitant]
  5. XANAX [Concomitant]
     Active Substance: ALPRAZOLAM
  6. CAMPRAL [Concomitant]
     Active Substance: ACAMPROSATE CALCIUM
  7. FLUVOXAMINE [Suspect]
     Active Substance: FLUVOXAMINE
     Indication: ANXIETY
     Dosage: ?          QUANTITY:1 TABLET(S);?
     Route: 048
     Dates: start: 20170612, end: 20170617
  8. OMPERAZOLE [Concomitant]
     Active Substance: OMEPRAZOLE
  9. PROPANLOL [Concomitant]

REACTIONS (1)
  - Completed suicide [None]

NARRATIVE: CASE EVENT DATE: 20170612
